FAERS Safety Report 5361236-9 (Version None)
Quarter: 2007Q2

REPORT INFORMATION
  Report Type: 
  Country: None (occurrence: None)
  Receive Date: 20070530
  Receipt Date: 20070122
  Transmission Date: 20071010
  Serious: No
  Sender: FDA-Public Use
  Company Number: 2006PV026642

PATIENT
  Age: 55 Year
  Sex: Female
  Weight: 95.2554 kg

DRUGS (3)
  1. BYETTA [Suspect]
     Indication: DIABETES MELLITUS NON-INSULIN-DEPENDENT
     Dosage: 5;10 MCG;BID;SC
     Route: 058
     Dates: start: 20061129, end: 20070101
  2. BYETTA [Suspect]
     Indication: DIABETES MELLITUS NON-INSULIN-DEPENDENT
     Dosage: 5;10 MCG;BID;SC
     Route: 058
     Dates: start: 20070111
  3. GLYBURIDE [Concomitant]

REACTIONS (4)
  - DECREASED APPETITE [None]
  - INJECTION SITE PAIN [None]
  - TOOTH ABSCESS [None]
  - WEIGHT DECREASED [None]
